FAERS Safety Report 11646710 (Version 2)
Quarter: 2016Q2

REPORT INFORMATION
  Report Type: Spontaneous
  Country: US (occurrence: US)
  Receive Date: 20151020
  Receipt Date: 20160504
  Transmission Date: 20160815
  Serious: No
  Sender: FDA-Public Use
  Company Number: US-ROCHE-ITM201505IM015794

PATIENT
  Sex: Female
  Weight: 84.9 kg

DRUGS (2)
  1. ESBRIET [Suspect]
     Active Substance: PIRFENIDONE
     Indication: IDIOPATHIC PULMONARY FIBROSIS
     Route: 048
     Dates: start: 20150424
  2. PLAVIX [Concomitant]
     Active Substance: CLOPIDOGREL BISULFATE

REACTIONS (8)
  - Back pain [Unknown]
  - Weight increased [Unknown]
  - Dyspepsia [Unknown]
  - Headache [Unknown]
  - Bronchitis [Not Recovered/Not Resolved]
  - Throat irritation [Unknown]
  - Constipation [Unknown]
  - Cough [Unknown]
